FAERS Safety Report 5748119-7 (Version None)
Quarter: 2008Q3

REPORT INFORMATION
  Report Type: 
  Country: None (occurrence: None)
  Receive Date: 20080521
  Receipt Date: 20080509
  Transmission Date: 20090109
  Serious: Yes (Other)
  Sender: FDA-Public Use
  Company Number: 100#03#2008-00884

PATIENT
  Age: 34 Year
  Sex: Male

DRUGS (2)
  1. CITALOPRAM HYDROBROMIDE [Suspect]
     Indication: DRUG USE FOR UNKNOWN INDICATION
     Dosage: ORAL
     Route: 048
  2. CHANTIX [Suspect]
     Indication: SMOKING CESSATION THERAPY
     Dosage: 1 MG ONCE DAILY, ORAL
     Route: 048
     Dates: end: 20080115

REACTIONS (5)
  - AGGRESSION [None]
  - DRUG INTERACTION [None]
  - HYPOMANIA [None]
  - IMPRISONMENT [None]
  - MANIA [None]
